FAERS Safety Report 20834498 (Version 1)
Quarter: 2022Q2

REPORT INFORMATION
  Report Type: Spontaneous
  Country: US (occurrence: None)
  Receive Date: 20220513
  Receipt Date: 20220513
  Transmission Date: 20220720
  Serious: Yes (Hospitalization)
  Sender: FDA-Public Use
  Company Number: None

PATIENT
  Sex: Male

DRUGS (1)
  1. GRANIX [Suspect]
     Active Substance: TBO-FILGRASTIM
     Indication: Bladder cancer
     Dosage: OTHER STRENGTH : 480/0.8 UG/ML;?OTHER QUANTITY : 480/0.8 UG/ML;?OTHER FREQUENCY : DAY 2-6, 9-14;?INJ
     Route: 058

REACTIONS (2)
  - Treatment noncompliance [None]
  - Hospitalisation [None]
